FAERS Safety Report 9243441 (Version 1)
Quarter: 2013Q2

REPORT INFORMATION
  Report Type: Spontaneous
  Country: FR (occurrence: FR)
  Receive Date: 20130421
  Receipt Date: 20130421
  Transmission Date: 20140414
  Serious: Yes (Life-Threatening, Hospitalization)
  Sender: FDA-Public Use
  Company Number: FR-BRISTOL-MYERS SQUIBB COMPANY-18780072

PATIENT
  Age: 29 Year
  Sex: Female

DRUGS (16)
  1. ETOPOPHOS FOR INJ 100 MG [Suspect]
     Indication: EPSTEIN-BARR VIRUS INFECTION
     Route: 042
     Dates: start: 20130128, end: 20130130
  2. HOLOXAN [Suspect]
     Indication: EPSTEIN-BARR VIRUS INFECTION
     Dosage: STRENGTH:2000MG
     Dates: start: 20130129, end: 20130130
  3. CARBOPLATIN [Suspect]
     Indication: EPSTEIN-BARR VIRUS INFECTION
     Dosage: STRENGTH:10MG/ML
     Route: 042
     Dates: start: 20130130
  4. ZELITREX [Concomitant]
  5. VFEND [Concomitant]
  6. UROMITEXAN [Concomitant]
     Dosage: STRENGTH:400MG
  7. BACTRIM [Concomitant]
  8. CORTANCYL [Concomitant]
  9. MOPRAL [Concomitant]
  10. DELURSAN [Concomitant]
  11. EMEND [Concomitant]
  12. ZOPHREN [Concomitant]
  13. DUROGESIC [Concomitant]
  14. ABSTRAL [Concomitant]
  15. TRANXENE [Concomitant]
  16. POTASSIUM [Concomitant]
     Dosage: SYRUP

REACTIONS (3)
  - Bone marrow failure [Recovered/Resolved]
  - Renal failure acute [Recovered/Resolved]
  - Septic shock [Unknown]
